FAERS Safety Report 9493726 (Version 1)
Quarter: 2013Q3

REPORT INFORMATION
  Report Type: Report from Study
  Country: US (occurrence: US)
  Receive Date: 20130902
  Receipt Date: 20130902
  Transmission Date: 20140515
  Serious: Yes (Other)
  Sender: FDA-Public Use
  Company Number: US-ELI_LILLY_AND_COMPANY-US201308006478

PATIENT
  Sex: Female

DRUGS (5)
  1. DULOXETINE HYDROCHLORIDE [Suspect]
     Indication: DEPRESSION
     Dosage: 120 MG, QD
  2. DULOXETINE HYDROCHLORIDE [Suspect]
     Indication: RHEUMATOID ARTHRITIS
  3. DULOXETINE HYDROCHLORIDE [Suspect]
     Indication: OSTEOARTHRITIS
  4. METOPROLOL TARTRATE [Concomitant]
     Dosage: 50 MG, QD
  5. XANAX [Concomitant]
     Dosage: 1 MG, EACH EVENING

REACTIONS (13)
  - Suicidal ideation [Recovered/Resolved]
  - Tremor [Not Recovered/Not Resolved]
  - Tremor [Recovered/Resolved]
  - Visual impairment [Not Recovered/Not Resolved]
  - Visual impairment [Recovered/Resolved]
  - Gait disturbance [Not Recovered/Not Resolved]
  - Gait disturbance [Recovered/Resolved]
  - Pain [Not Recovered/Not Resolved]
  - Pain [Recovered/Resolved]
  - Mental impairment [Not Recovered/Not Resolved]
  - Intentional drug misuse [Unknown]
  - Headache [Recovered/Resolved]
  - Drug withdrawal syndrome [Not Recovered/Not Resolved]
